FAERS Safety Report 4826684-1 (Version None)
Quarter: 2005Q4

REPORT INFORMATION
  Report Type: 
  Country: None (occurrence: None)
  Receive Date: 20051014
  Receipt Date: 20050805
  Transmission Date: 20060501
  Serious: No
  Sender: FDA-Public Use
  Company Number: 2005SP002254

PATIENT
  Age: 47 Year
  Sex: Male
  Weight: 104.3273 kg

DRUGS (5)
  1. LUNESTA [Suspect]
     Indication: INSOMNIA
     Dosage: 2 MG;HS;ORAL, 3 MG;HS;ORAL, 5 MG;HS;ORAL, 6 MG;HS;ORAL
     Route: 048
     Dates: start: 20050804, end: 20050804
  2. LUNESTA [Suspect]
     Indication: INSOMNIA
     Dosage: 2 MG;HS;ORAL, 3 MG;HS;ORAL, 5 MG;HS;ORAL, 6 MG;HS;ORAL
     Route: 048
     Dates: start: 20050805, end: 20050805
  3. LUNESTA [Suspect]
     Indication: INSOMNIA
     Dosage: 2 MG;HS;ORAL, 3 MG;HS;ORAL, 5 MG;HS;ORAL, 6 MG;HS;ORAL
     Route: 048
     Dates: start: 20050806, end: 20050806
  4. LUNESTA [Suspect]
     Indication: INSOMNIA
     Dosage: 2 MG;HS;ORAL, 3 MG;HS;ORAL, 5 MG;HS;ORAL, 6 MG;HS;ORAL
     Route: 048
     Dates: start: 20050807
  5. PLAVIX [Concomitant]

REACTIONS (2)
  - DRUG INEFFECTIVE [None]
  - INSOMNIA [None]
